FAERS Safety Report 8266652-3 (Version None)
Quarter: 2012Q2

REPORT INFORMATION
  Report Type: 
  Country: None (occurrence: None)
  Receive Date: 20120407
  Receipt Date: 20120327
  Transmission Date: 20120825
  Serious: Yes (Hospitalization)
  Sender: FDA-Public Use
  Company Number: US-ASTRAZENECA-2010SE59679

PATIENT
  Age: 30 Year
  Sex: Female
  Weight: 68 kg

DRUGS (8)
  1. NEXIUM [Suspect]
     Route: 048
  2. PRILOSEC [Suspect]
     Dosage: ONE IN THE MORNING ONE AT NIGHT
     Route: 048
  3. PRILOSEC [Suspect]
     Indication: GASTROOESOPHAGEAL REFLUX DISEASE
     Dosage: DAILY
     Route: 048
  4. SEIZURE MEDICATION [Concomitant]
     Indication: CONVULSION
  5. LEXAPRO [Concomitant]
     Indication: DEPRESSION
     Dosage: DAILY
     Route: 048
  6. DEPRESSION MEDICATION [Concomitant]
     Indication: DEPRESSION
  7. PHENOBARBITAL TAB [Concomitant]
     Indication: CONVULSION
     Dosage: DAILY
     Route: 048
  8. NEXIUM [Suspect]
     Indication: GASTROOESOPHAGEAL REFLUX DISEASE
     Route: 048
     Dates: start: 19990101

REACTIONS (3)
  - DRUG INEFFECTIVE [None]
  - SHUNT MALFUNCTION [None]
  - NERVOUS SYSTEM DISORDER [None]
